FAERS Safety Report 19497463 (Version 1)
Quarter: 2021Q3

REPORT INFORMATION
  Report Type: Spontaneous
  Country: US (occurrence: US)
  Receive Date: 20210706
  Receipt Date: 20210706
  Transmission Date: 20211014
  Serious: Yes (Death)
  Sender: FDA-Public Use
  Company Number: None

PATIENT
  Age: 54 Year
  Sex: Female
  Weight: 89.55 kg

DRUGS (23)
  1. OXYCONTIN [Concomitant]
     Active Substance: OXYCODONE HYDROCHLORIDE
  2. PHOSNAK [Concomitant]
  3. ZELBORAF [Suspect]
     Active Substance: VEMURAFENIB
     Indication: MALIGNANT MELANOMA
     Dosage: ?          OTHER FREQUENCY:BID FOR 21/28 DAYS;?
     Route: 048
     Dates: start: 20210615, end: 20210623
  4. COTELLIC [Suspect]
     Active Substance: COBIMETINIB
     Indication: MALIGNANT MELANOMA
     Dosage: ?          OTHER FREQUENCY:DAILY FOR 21/28 DA;?
     Route: 048
     Dates: start: 20210615, end: 20210623
  5. B? COMPLEX [Concomitant]
  6. DEXAMETHASONE. [Concomitant]
     Active Substance: DEXAMETHASONE
  7. DICYCLOMINE [Concomitant]
     Active Substance: DICYCLOMINE HYDROCHLORIDE
  8. ESCITALOPRAM [Concomitant]
     Active Substance: ESCITALOPRAM OXALATE
  9. VITAMIN C [Concomitant]
     Active Substance: ASCORBIC ACID
  10. FAMOTIDINE. [Concomitant]
     Active Substance: FAMOTIDINE
  11. TRIAMCINOLONE [Concomitant]
     Active Substance: TRIAMCINOLONE
  12. MAGNESIUM [Concomitant]
     Active Substance: MAGNESIUM
  13. NORCO [Concomitant]
     Active Substance: ACETAMINOPHEN\HYDROCODONE BITARTRATE
  14. PREDNISONE. [Concomitant]
     Active Substance: PREDNISONE
  15. CLONAZPEAM [Concomitant]
  16. LOPERAMIDE [Concomitant]
     Active Substance: LOPERAMIDE
  17. METOCLOPRAMIDE. [Concomitant]
     Active Substance: METOCLOPRAMIDE
  18. PROCHLORPERAZINE. [Concomitant]
     Active Substance: PROCHLORPERAZINE
  19. FLORASTOR [Concomitant]
     Active Substance: SACCHAROMYCES CEREVISIAE
  20. LEVOTHYROXINE. [Concomitant]
     Active Substance: LEVOTHYROXINE
  21. MORPHINE [Concomitant]
     Active Substance: MORPHINE
  22. MULTI VITAMIN [Concomitant]
     Active Substance: VITAMINS
  23. ONDANSETRON [Concomitant]
     Active Substance: ONDANSETRON

REACTIONS (1)
  - Stevens-Johnson syndrome [None]

NARRATIVE: CASE EVENT DATE: 20210623
